FAERS Safety Report 8391035-5 (Version None)
Quarter: 2012Q2

REPORT INFORMATION
  Report Type: 
  Country: None (occurrence: None)
  Receive Date: 20120515
  Receipt Date: 20120509
  Transmission Date: 20120825
  Serious: Yes (Death)
  Sender: FDA-Public Use
  Company Number: 2012SP021102

PATIENT
  Age: 61 Year
  Sex: Male

DRUGS (4)
  1. ATORVASTATIN CALCIUM [Concomitant]
  2. TEMODAL [Suspect]
     Indication: GLIOBLASTOMA
     Dosage: 140 MG;QD;PO
     Route: 048
     Dates: start: 20120213, end: 20120311
  3. LANSOPRAZOLE [Concomitant]
  4. ASPIRIN [Concomitant]

REACTIONS (2)
  - ACUTE RESPIRATORY DISTRESS SYNDROME [None]
  - PANCYTOPENIA [None]
